FAERS Safety Report 7801064-5 (Version None)
Quarter: 2011Q4

REPORT INFORMATION
  Report Type: 
  Country: None (occurrence: None)
  Receive Date: 20111007
  Receipt Date: 20111003
  Transmission Date: 20120403
  Serious: No
  Sender: FDA-Public Use
  Company Number: US-BIOGENIDEC-2011BI035498

PATIENT
  Age: 43 Year
  Sex: Male

DRUGS (2)
  1. TYSABRI [Suspect]
     Indication: MULTIPLE SCLEROSIS
     Route: 042
     Dates: start: 20110411, end: 20110822
  2. AVONEX [Concomitant]
     Indication: MULTIPLE SCLEROSIS
     Route: 030

REACTIONS (7)
  - INCREASED UPPER AIRWAY SECRETION [None]
  - MULTIPLE SCLEROSIS RELAPSE [None]
  - BRONCHITIS [None]
  - SPUTUM RETENTION [None]
  - NASOPHARYNGITIS [None]
  - FOOT FRACTURE [None]
  - COUGH [None]
